FAERS Safety Report 4877861-5 (Version None)
Quarter: 2006Q1

REPORT INFORMATION
  Report Type: 
  Country: None (occurrence: None)
  Receive Date: 20060109
  Receipt Date: 20061227
  Transmission Date: 20060701
  Serious: Yes (Hospitalization, Other)
  Sender: FDA-Public Use
  Company Number: HQWYE159803JAN06

PATIENT
  Age: 8 Year
  Sex: Female

DRUGS (3)
  1. ADVIL [Suspect]
     Indication: PYREXIA
     Dosage: ORAL
     Route: 048
     Dates: start: 20051011
  2. AMOXICILLIN TRIHYDRATE [Concomitant]
  3. ACETAMINOPHEN [Concomitant]

REACTIONS (1)
  - PNEUMONIA MYCOPLASMAL [None]
